FAERS Safety Report 9109534 (Version 4)
Quarter: 2013Q2

REPORT INFORMATION
  Report Type: Report from Study
  Country: NL (occurrence: NL)
  Receive Date: 20130222
  Receipt Date: 20130411
  Transmission Date: 20140414
  Serious: Yes (Life-Threatening, Hospitalization)
  Sender: FDA-Public Use
  Company Number: NL-JNJFOC-20130212674

PATIENT
  Age: 61 Year
  Sex: Female
  Weight: 72.2 kg

DRUGS (7)
  1. STELARA [Suspect]
     Indication: PSORIASIS
     Route: 058
     Dates: start: 20130108
  2. STELARA [Suspect]
     Indication: PSORIASIS
     Route: 058
     Dates: start: 200902
  3. ACITRETIN [Concomitant]
     Indication: PSORIASIS
     Route: 048
     Dates: start: 20050905
  4. FLUVASTATIN [Concomitant]
     Indication: HYPERCHOLESTEROLAEMIA
     Route: 048
     Dates: start: 2009
  5. NOVOMIX [Concomitant]
     Indication: DIABETES MELLITUS
     Dates: start: 2009
  6. SPIRONOLACTONE [Concomitant]
     Route: 048
     Dates: start: 20120808
  7. HYDROCHLOROTHIAZIDE [Concomitant]
     Dates: start: 20120222

REACTIONS (1)
  - Myocardial infarction [Recovered/Resolved]
